FAERS Safety Report 4889050-9 (Version None)
Quarter: 2005Q4

REPORT INFORMATION
  Report Type: 
  Country: None (occurrence: None)
  Receive Date: 20051215
  Receipt Date: 20050226
  Transmission Date: 20060501
  Serious: Yes (Hospitalization)
  Sender: FDA-Public Use
  Company Number: 2004117664

PATIENT
  Age: 75 Year
  Sex: Male

DRUGS (13)
  1. BEXTRA [Suspect]
     Indication: BACK PAIN
     Dosage: (20 MG,ONCE DAILY TO TWICE DAILY),ORAL
     Route: 048
     Dates: start: 20040609, end: 20040714
  2. BEXTRA [Suspect]
     Indication: OSTEOARTHRITIS
     Dosage: (20 MG,ONCE DAILY TO TWICE DAILY),ORAL
     Route: 048
     Dates: start: 20040609, end: 20040714
  3. TIZANIDINE HCL [Concomitant]
  4. ALL OTHER THERAPEUTIC PRODUCTS (ALL OTHER THERAPEUTIC PRODUCTS) [Concomitant]
  5. GABAPENTIN [Concomitant]
  6. INSULIN HUMAN INJECTION, ISOPHANE (INSULIN HUMAN INJECTION, ISOPHANE) [Concomitant]
  7. LANSOPRAZOLE [Concomitant]
  8. CARVEDILOL [Concomitant]
  9. FUROSEMIDE [Concomitant]
  10. INSULIN LISPRO (INSULIN LISPRO) [Concomitant]
  11. METOLAZONE [Concomitant]
  12. ASPIRIN [Concomitant]
  13. FOLIC ACID [Concomitant]

REACTIONS (2)
  - CARDIAC FAILURE CONGESTIVE [None]
  - OEDEMA PERIPHERAL [None]
